FAERS Safety Report 6522991-5 (Version None)
Quarter: 2009Q4

REPORT INFORMATION
  Report Type: 
  Country: None (occurrence: None)
  Receive Date: 20091222
  Receipt Date: 20091207
  Transmission Date: 20100525
  Serious: Yes (Hospitalization)
  Sender: FDA-Public Use
  Company Number: 2009AL007749

PATIENT
  Age: 85 Year
  Sex: Male

DRUGS (12)
  1. RAMIPRIL [Suspect]
     Dosage: PO
     Route: 048
  2. CHAMPIX [Concomitant]
  3. GLYCERYL TRINITRATE [Concomitant]
  4. DILTIAZEM [Concomitant]
  5. SIMVASTATIN [Concomitant]
  6. LANSOPRAZOLE [Concomitant]
  7. QUININE [Concomitant]
  8. ALENDRONIC ACID [Concomitant]
  9. PREDNISOLONE [Concomitant]
  10. SERETIDE [Concomitant]
  11. ASPIRIN [Concomitant]
  12. ALL OTHER THERAPEUTIC PRODUCTS [Concomitant]

REACTIONS (3)
  - AMNESIA [None]
  - FALL [None]
  - HEAD INJURY [None]
